FAERS Safety Report 4608505-5 (Version None)
Quarter: 2005Q1

REPORT INFORMATION
  Report Type: 
  Country: None (occurrence: None)
  Receive Date: 20050315
  Receipt Date: 20050304
  Transmission Date: 20050727
  Serious: Yes (Death, Hospitalization)
  Sender: FDA-Public Use
  Company Number: 200511912US

PATIENT
  Age: 61 Year
  Sex: Female
  Weight: 186.4 kg

DRUGS (3)
  1. LOVENOX [Suspect]
     Indication: ATRIAL FIBRILLATION
     Dates: start: 20050115, end: 20050119
  2. LOVENOX [Suspect]
     Indication: ATRIAL FLUTTER
     Dates: start: 20050115, end: 20050119
  3. HEPARIN [Concomitant]
     Dosage: DOSE: UNK
     Route: 058

REACTIONS (9)
  - ABDOMINAL HAEMATOMA [None]
  - ABDOMINAL PAIN UPPER [None]
  - DISSEMINATED INTRAVASCULAR COAGULATION [None]
  - HYPOTENSION [None]
  - HYPOVOLAEMIA [None]
  - INTESTINAL ISCHAEMIA [None]
  - MYOCARDIAL INFARCTION [None]
  - RENAL FAILURE [None]
  - SUBCUTANEOUS HAEMATOMA [None]
